FAERS Safety Report 5810536-4 (Version None)
Quarter: 2008Q3

REPORT INFORMATION
  Report Type: 
  Country: None (occurrence: None)
  Receive Date: 20080715
  Receipt Date: 20080709
  Transmission Date: 20090109
  Serious: Yes (Life-Threatening, Hospitalization)
  Sender: FDA-Public Use
  Company Number: US-JNJFOC-20080403284

PATIENT
  Sex: Female

DRUGS (1)
  1. ORTHO EVRA [Suspect]
     Indication: OVARIAN FAILURE
     Route: 062

REACTIONS (3)
  - ACUTE MYOCARDIAL INFARCTION [None]
  - OFF LABEL USE [None]
  - VENTRICULAR FIBRILLATION [None]
